FAERS Safety Report 13259266 (Version 2)
Quarter: 2017Q1

REPORT INFORMATION
  Report Type: Spontaneous
  Country: US (occurrence: US)
  Receive Date: 20170222
  Receipt Date: 20170310
  Transmission Date: 20170428
  Serious: No
  Sender: FDA-Public Use
  Company Number: US-PFIZER INC-2016472206

PATIENT
  Age: 59 Year
  Sex: Female
  Weight: 72.56 kg

DRUGS (14)
  1. SKELAXIN [Suspect]
     Active Substance: METAXALONE
     Indication: MUSCLE RELAXANT THERAPY
     Dosage: 800 MG, 3X/DAY (AS NEEDED)
     Route: 048
     Dates: start: 20160908
  2. VENLAFAXINE HYDROCHLORIDE. [Concomitant]
     Active Substance: VENLAFAXINE HYDROCHLORIDE
     Dosage: 75 MG, 1X/DAY
     Route: 048
     Dates: start: 20160922
  3. VENLAFAXINE HYDROCHLORIDE. [Concomitant]
     Active Substance: VENLAFAXINE HYDROCHLORIDE
     Dosage: 150 MG, 1X/DAY
     Route: 048
     Dates: start: 20160922
  4. LORATADINE. [Concomitant]
     Active Substance: LORATADINE
     Dosage: 10 MG, DAILY(AS NEEDED)
     Route: 048
     Dates: start: 20160923
  5. FERROUS SULFATE. [Concomitant]
     Active Substance: FERROUS SULFATE
     Dosage: 325 MG, 1X/DAY
     Route: 048
     Dates: start: 20160923
  6. BUSPIRONE [Concomitant]
     Active Substance: BUSPIRONE HYDROCHLORIDE
     Dosage: 15 MG, 1X/DAY
     Route: 048
     Dates: start: 20160922
  7. LYRICA [Concomitant]
     Active Substance: PREGABALIN
     Dosage: 75 MG, 2X/DAY
     Route: 048
     Dates: start: 20160427
  8. NYSTATIN, TRIAMCINOLONE [Concomitant]
     Dosage: UNK, 2X/DAY
     Route: 061
     Dates: start: 20160829
  9. SKELAXIN [Suspect]
     Active Substance: METAXALONE
     Indication: PAIN
  10. ACYCLOVIR. [Concomitant]
     Active Substance: ACYCLOVIR
     Dosage: 400 MG, 2X/DAY
     Route: 048
     Dates: start: 20160816
  11. CLOBETASOL [Concomitant]
     Active Substance: CLOBETASOL
     Indication: LICHEN SCLEROSUS
     Dosage: 0.05 %, 2X/DAY
     Route: 061
     Dates: start: 20160923
  12. CLONAZEPAM. [Concomitant]
     Active Substance: CLONAZEPAM
     Indication: ANXIETY
     Dosage: 1 MG, DAILY(AS NEEDED)
     Route: 048
     Dates: start: 20160922
  13. SIMVASTATIN. [Concomitant]
     Active Substance: SIMVASTATIN
     Dosage: 40 MG, 1X/DAY
     Route: 048
  14. TERCONAZOLE. [Concomitant]
     Active Substance: TERCONAZOLE
     Dosage: 0.4 %, UNK
     Route: 067
     Dates: start: 20160907

REACTIONS (3)
  - Product use issue [Unknown]
  - Irritability [Unknown]
  - Pain [Unknown]
